FAERS Safety Report 4806007-4 (Version None)
Quarter: 2005Q4

REPORT INFORMATION
  Report Type: 
  Country: None (occurrence: None)
  Receive Date: 20051021
  Receipt Date: 20051010
  Transmission Date: 20060501
  Serious: Yes (Hospitalization)
  Sender: FDA-Public Use
  Company Number: FR-GLAXOSMITHKLINE-B0396635A

PATIENT
  Age: 64 Year
  Sex: Male
  Weight: 170 kg

DRUGS (1)
  1. AVANDIA [Suspect]
     Route: 048
     Dates: start: 20050808, end: 20050823

REACTIONS (9)
  - ASCITES [None]
  - DEPRESSED LEVEL OF CONSCIOUSNESS [None]
  - DYSPNOEA [None]
  - FLUID RETENTION [None]
  - GENERALISED OEDEMA [None]
  - PLEURAL EFFUSION [None]
  - PULMONARY FUNCTION TEST DECREASED [None]
  - RESPIRATORY ACIDOSIS [None]
  - WEIGHT INCREASED [None]
